FAERS Safety Report 16204839 (Version 1)
Quarter: 2019Q2

REPORT INFORMATION
  Report Type: Spontaneous
  Country: IT (occurrence: IT)
  Receive Date: 20190416
  Receipt Date: 20190416
  Transmission Date: 20190711
  Serious: Yes (Life-Threatening, Other)
  Sender: FDA-Public Use
  Company Number: IT-PFIZER INC-2019163393

PATIENT
  Age: 39 Year
  Sex: Female

DRUGS (5)
  1. INDERAL [Suspect]
     Active Substance: PROPRANOLOL HYDROCHLORIDE
     Dosage: 1.2 G, TOTAL (ABUSE/MISUSE)
     Route: 048
     Dates: start: 20190314, end: 20190314
  2. GABAPENTIN. [Suspect]
     Active Substance: GABAPENTIN
     Dosage: 16.2 G, UNK (TOTAL (ABUSE/MISUSE)
     Route: 048
     Dates: start: 20190314, end: 20190314
  3. PAROXETINE. [Suspect]
     Active Substance: PAROXETINE
     Dosage: 560 MG, TOTAL (ABUSE/MISUSE)
     Dates: start: 20190314, end: 20190314
  4. ESOMEPRAZOLE SODIUM. [Suspect]
     Active Substance: ESOMEPRAZOLE SODIUM
     Dosage: UNK (ABUSE/MISUSE)
     Route: 048
     Dates: start: 20190314, end: 20190314
  5. DEPAKIN [Suspect]
     Active Substance: VALPROATE SODIUM
     Dosage: 25 G, TOTAL (ABUSE/MISUSE)
     Route: 048
     Dates: start: 20190314, end: 20190314

REACTIONS (3)
  - Coma [Recovering/Resolving]
  - Drug abuse [Unknown]
  - Suicide attempt [Recovering/Resolving]

NARRATIVE: CASE EVENT DATE: 20190314
